FAERS Safety Report 4919324-4 (Version None)
Quarter: 2006Q1

REPORT INFORMATION
  Report Type: 
  Country: None (occurrence: None)
  Receive Date: 20060216
  Receipt Date: 20060203
  Transmission Date: 20060701
  Serious: Yes (Other)
  Sender: FDA-Public Use
  Company Number: 2006017230

PATIENT
  Age: 73 Year
  Sex: Male
  Weight: 79.3795 kg

DRUGS (7)
  1. VIAGRA [Suspect]
     Indication: ERECTILE DYSFUNCTION
     Dosage: 100 MG (100 MG, AS NECESSARY), UNKNOWN
  2. ASACOL [Concomitant]
  3. ACIPHEX [Concomitant]
  4. CAPTOPROL (CAPTOPRIL) [Concomitant]
  5. LESCOL [Concomitant]
  6. METOPROLOL (METOPROLOL) [Concomitant]
  7. HYDROCHLOROTHIAZIDE WITH TRIAMTERENE (HYDROCHLOROTHIAZIDE, TRIAMTERENE [Concomitant]

REACTIONS (3)
  - CHEST DISCOMFORT [None]
  - CORONARY ARTERY OCCLUSION [None]
  - DRUG INEFFECTIVE [None]
